FAERS Safety Report 9576726 (Version 1)
Quarter: 2013Q4

REPORT INFORMATION
  Report Type: Spontaneous
  Country: US (occurrence: US)
  Receive Date: 20131001
  Receipt Date: 20131001
  Transmission Date: 20140711
  Serious: No
  Sender: FDA-Public Use
  Company Number: US-AMGEN-USASP2013004442

PATIENT
  Sex: Male

DRUGS (15)
  1. ENBREL [Suspect]
     Indication: RHEUMATOID ARTHRITIS
     Dosage: 25 MG, 2 TIMES/WK
     Route: 058
  2. LEVITRA [Concomitant]
     Dosage: 10 MG, UNK
  3. FINASTERIDE [Concomitant]
     Dosage: 5 MG, UNK
  4. VITAMIN E                          /00110501/ [Concomitant]
     Dosage: 400 UNIT, UNK
  5. FISH OIL [Concomitant]
     Dosage: 1000 MCG, UNK
  6. SAW PALMETTO                       /00833501/ [Concomitant]
     Dosage: 450 MG, UNK
  7. CLARITIN                           /00413701/ [Concomitant]
     Dosage: 10 MG, UNK
  8. ALFUZOSIN [Concomitant]
     Dosage: 10 MG, UNK
  9. FLAXSEED OIL [Concomitant]
     Dosage: 1200 MG, UNK
  10. COQ-10 [Concomitant]
     Dosage: 100 MG, UNK
  11. FOLIC ACID [Concomitant]
     Dosage: UNK
  12. MULTIVITAMINS, PLAIN [Concomitant]
     Dosage: UNK
  13. METHOTREXATE [Concomitant]
     Dosage: 25 MG/ML, UNK
  14. GLUCOSAMINE AND CHONDROITIN WITH MSM [Concomitant]
     Dosage: UNK, DBL STR
  15. VITAMIN C                          /00008001/ [Concomitant]
     Dosage: 1000 MG, UNK

REACTIONS (1)
  - Pyrexia [Unknown]
